FAERS Safety Report 4554133-X (Version None)
Quarter: 2005Q1

REPORT INFORMATION
  Report Type: 
  Country: None (occurrence: None)
  Receive Date: 20050118
  Receipt Date: 20050107
  Transmission Date: 20050727
  Serious: Yes (Hospitalization)
  Sender: FDA-Public Use
  Company Number: PHRM2005FR00520

PATIENT
  Age: 54 Year
  Sex: Male
  Weight: 70 kg

DRUGS (5)
  1. FRACTAL [Suspect]
     Indication: HYPERCHOLESTEROLAEMIA
     Dosage: 40 MG/DAY
     Route: 048
     Dates: start: 20041002, end: 20041016
  2. BETA ADRENERGIC BLOCKING DRUGS [Concomitant]
     Dates: start: 20041002, end: 20041020
  3. ASPEGIC 325 [Concomitant]
     Dosage: 100 MG/DAY
     Dates: start: 20041002, end: 20041020
  4. MOPRAL [Concomitant]
     Dosage: 20 MG/DAY
     Dates: start: 20041002, end: 20041020
  5. LOVENOX [Suspect]
     Dosage: 0.6 ML, BID
     Dates: start: 20041002, end: 20041020

REACTIONS (11)
  - ALANINE AMINOTRANSFERASE INCREASED [None]
  - ASPARTATE AMINOTRANSFERASE INCREASED [None]
  - BLOOD ALKALINE PHOSPHATASE INCREASED [None]
  - CHOLESTASIS [None]
  - EOSINOPHIL COUNT INCREASED [None]
  - GAMMA-GLUTAMYLTRANSFERASE INCREASED [None]
  - HEPATOCELLULAR DAMAGE [None]
  - INFLAMMATION [None]
  - PLATELET COUNT INCREASED [None]
  - POST PROCEDURAL COMPLICATION [None]
  - THROMBOCYTHAEMIA [None]
